FAERS Safety Report 6081707-X (Version None)
Quarter: 2009Q1

REPORT INFORMATION
  Report Type: 
  Country: None (occurrence: None)
  Receive Date: 20090218
  Receipt Date: 20090206
  Transmission Date: 20090719
  Serious: Yes (Death, Life-Threatening, Hospitalization, Disabling)
  Sender: FDA-Public Use
  Company Number: FR-PFIZER INC-2009154236

PATIENT

DRUGS (9)
  1. SOMATROPIN [Suspect]
     Indication: PITUITARY TUMOUR BENIGN
     Dosage: 0.20 MG, 1X/DAY
     Dates: start: 20050115, end: 20061119
  2. SOMATROPIN [Suspect]
     Indication: HYPOPITUITARISM
  3. LEVOTHYROX [Concomitant]
     Dosage: UNK
  4. HYDROCORTISONE [Concomitant]
  5. ANDROTARDYL [Concomitant]
     Dosage: UNK
  6. SECTRAL [Concomitant]
     Dosage: UNK
  7. ELISOR [Concomitant]
     Dosage: UNK
  8. KARDEGIC [Concomitant]
     Dosage: UNK
  9. LANZOR [Concomitant]
     Dosage: UNK

REACTIONS (2)
  - BRAIN OEDEMA [None]
  - MALIGNANT PITUITARY TUMOUR [None]
